FAERS Safety Report 7236020-1 (Version None)
Quarter: 2011Q1

REPORT INFORMATION
  Report Type: 
  Country: None (occurrence: None)
  Receive Date: 20110120
  Receipt Date: 20101227
  Transmission Date: 20110831
  Serious: Yes (Hospitalization, Other)
  Sender: FDA-Public Use
  Company Number: US-BAYER-200942393NA

PATIENT
  Sex: Female

DRUGS (1)
  1. YASMIN [Suspect]
     Indication: PRODUCT USED FOR UNKNOWN INDICATION
     Dates: start: 20030301, end: 20071201

REACTIONS (9)
  - GALLBLADDER DISORDER [None]
  - GASTROOESOPHAGEAL REFLUX DISEASE [None]
  - VOMITING [None]
  - ABDOMINAL PAIN UPPER [None]
  - DIARRHOEA [None]
  - APPENDICITIS PERFORATED [None]
  - NAUSEA [None]
  - PAIN [None]
  - ABDOMINAL PAIN [None]
